FAERS Safety Report 8261976-8 (Version None)
Quarter: 2012Q2

REPORT INFORMATION
  Report Type: 
  Country: None (occurrence: None)
  Receive Date: 20120402
  Receipt Date: 20120323
  Transmission Date: 20120825
  Serious: No
  Sender: FDA-Public Use
  Company Number: 2012SP016678

PATIENT
  Age: 32 Year
  Sex: Female

DRUGS (1)
  1. SYCREST (ASENAPINE /05706901/) (5 MG) [Suspect]
     Indication: BIPOLAR I DISORDER
     Dosage: 5 MG; QD; SL
     Route: 060
     Dates: start: 20120315, end: 20120315

REACTIONS (4)
  - HYPERSENSITIVITY [None]
  - MACROGLOSSIA [None]
  - PRURITUS [None]
  - SWELLING FACE [None]
